FAERS Safety Report 7785308-4 (Version None)
Quarter: 2011Q3

REPORT INFORMATION
  Report Type: 
  Country: None (occurrence: None)
  Receive Date: 20110929
  Receipt Date: 20110923
  Transmission Date: 20111222
  Serious: Yes (Other)
  Sender: FDA-Public Use
  Company Number: US-PFIZER INC-2011227637

PATIENT
  Sex: Male
  Weight: 61.224 kg

DRUGS (6)
  1. CELEBREX [Suspect]
     Indication: SWELLING
  2. LISINOPRIL [Concomitant]
     Indication: BLOOD PRESSURE ABNORMAL
     Dosage: UNK
  3. CELEBREX [Suspect]
     Indication: APHONIA
  4. CELEBREX [Suspect]
     Indication: INFLAMMATION
  5. CELEBREX [Suspect]
     Indication: BACK PAIN
  6. CELEBREX [Suspect]
     Indication: LARYNGITIS
     Dosage: 200 MG, 1X/DAY
     Route: 048
     Dates: start: 20110919

REACTIONS (1)
  - DYSPHAGIA [None]
